FAERS Safety Report 16305852 (Version 1)
Quarter: 2019Q2

REPORT INFORMATION
  Report Type: Spontaneous
  Country: CN (occurrence: CN)
  Receive Date: 20190513
  Receipt Date: 20190513
  Transmission Date: 20190711
  Serious: Yes (Hospitalization)
  Sender: FDA-Public Use
  Company Number: CN-BAXTER-2019BAX009418

PATIENT
  Age: 52 Year
  Sex: Female
  Weight: 57 kg

DRUGS (8)
  1. HOLOXAN [Suspect]
     Active Substance: IFOSFAMIDE
     Dosage: DOSE RE-INTRODUCED, DILUTED WITH 0.9% SODIUM CHLORIDE, DOSAGE FORM: INJECTION
     Route: 041
  2. 5% GLUCOSE  INJECTION [Suspect]
     Active Substance: DEXTROSE
     Indication: MEDICATION DILUTION
     Dosage: DILUTED WITH DOXORUBICIN HYDROCHLORIDE LIPOSOME INJECTION 50 MG, DOSAGE FORM: INJECTION
     Route: 041
     Dates: start: 20190323, end: 20190324
  3. 0.9% SODIUM CHLORIDE INJECTION [Suspect]
     Active Substance: SODIUM CHLORIDE
     Dosage: DOSE RE-INTRODUCED, DILUTED WITH IFOSFAMIDE, DOSAGE FORM: INJECTION
     Route: 041
  4. DOXORUBICIN HYDROCHLORIDE LIPOSOME [Suspect]
     Active Substance: DOXORUBICIN HYDROCHLORIDE
     Indication: SARCOMA UTERUS
     Dosage: DILUTED WITH 5% GLUCOSE INJECTION 100 ML
     Route: 041
     Dates: start: 20190323, end: 20190324
  5. 5% GLUCOSE  INJECTION [Suspect]
     Active Substance: DEXTROSE
     Dosage: DOSE RE-INTRODUCED, DILUTED WITH DOXORUBICIN HYDROCHLORIDE LIPOSOME, DOSAGE FORM: INJECTION
     Route: 041
  6. DOXORUBICIN HYDROCHLORIDE LIPOSOME [Suspect]
     Active Substance: DOXORUBICIN HYDROCHLORIDE
     Dosage: DOSE RE-INTRODUCED, DILUTED WITH 5% GLUCOSE INJECTION
     Route: 041
  7. HOLOXAN [Suspect]
     Active Substance: IFOSFAMIDE
     Indication: SARCOMA UTERUS
     Dosage: DILUTED WITH 0.9% SODIUM CHLORIDE INJECTION 500 ML, DOSAGE FORM: INJECTION
     Route: 041
     Dates: start: 20190323, end: 20190326
  8. 0.9% SODIUM CHLORIDE INJECTION [Suspect]
     Active Substance: SODIUM CHLORIDE
     Indication: MEDICATION DILUTION
     Dosage: DILUTED WITH IFOSFAMIDE FOR INJECTION 4 G, DOSAGE FORM: INJECTION
     Route: 041
     Dates: start: 20190323, end: 20190326

REACTIONS (1)
  - Bone marrow failure [Recovering/Resolving]

NARRATIVE: CASE EVENT DATE: 20190404
